FAERS Safety Report 18664167 (Version 2)
Quarter: 2021Q1

REPORT INFORMATION
  Report Type: Spontaneous
  Country: JP (occurrence: JP)
  Receive Date: 20201225
  Receipt Date: 20210111
  Transmission Date: 20210419
  Serious: Yes (Death, Other)
  Sender: FDA-Public Use
  Company Number: JP-AMGEN-JPNSP2020209635

PATIENT
  Age: 87 Year
  Sex: Male

DRUGS (21)
  1. ORKEDIA [Concomitant]
     Active Substance: EVOCALCET
     Dosage: UNK
     Route: 048
  2. PLAVIX [Concomitant]
     Active Substance: CLOPIDOGREL BISULFATE
     Dosage: UNK
     Route: 048
  3. REMITCH OD [Concomitant]
     Dosage: UNK
     Route: 048
  4. DAPRODUSTAT [Suspect]
     Active Substance: DAPRODUSTAT
     Indication: NEPHROGENIC ANAEMIA
     Dosage: 4 MILLIGRAM
     Route: 048
     Dates: start: 20200826
  5. DAPRODUSTAT [Suspect]
     Active Substance: DAPRODUSTAT
     Dosage: 8 MILLIGRAM
     Route: 048
     Dates: start: 20201107, end: 20201119
  6. FEBURIC [Concomitant]
     Active Substance: FEBUXOSTAT
     Dosage: UNK
     Route: 048
  7. DARBEPOETIN ALFA [Suspect]
     Active Substance: DARBEPOETIN ALFA
     Dosage: 15 MICROGRAM
     Route: 065
     Dates: end: 20200717
  8. DARBEPOETIN ALFA [Suspect]
     Active Substance: DARBEPOETIN ALFA
     Dosage: 20 MICROGRAM
     Route: 065
     Dates: start: 20200724
  9. ROXADUSTAT. [Concomitant]
     Active Substance: ROXADUSTAT
     Dosage: 100 MILLIGRAM
     Route: 048
     Dates: start: 20201120
  10. PREDNISOLONE. [Concomitant]
     Active Substance: PREDNISOLONE
     Dosage: UNK
     Route: 048
  11. ROCALTROL [Concomitant]
     Active Substance: CALCITRIOL
     Dosage: UNK
     Route: 048
  12. RIONA [Concomitant]
     Active Substance: FERRIC CITRATE ANHYDROUS
     Dosage: UNK
     Route: 048
  13. ANPLAG [SARPOGRELATE HYDROCHLORIDE] [Concomitant]
     Active Substance: SARPOGRELATE HYDROCHLORIDE
     Dosage: UNK
     Route: 048
  14. LUNESTA [Concomitant]
     Active Substance: ESZOPICLONE
     Dosage: UNK
     Route: 048
  15. DAPRODUSTAT [Suspect]
     Active Substance: DAPRODUSTAT
     Dosage: 6 MILLIGRAM
     Route: 048
     Dates: start: 20201009
  16. MICARDIS [Concomitant]
     Active Substance: TELMISARTAN
     Dosage: UNK
     Route: 048
  17. MIYA?BM [Concomitant]
     Active Substance: CLOSTRIDIUM BUTYRICUM SPORES STRAIN M-55
     Dosage: UNK
     Route: 048
  18. DARBEPOETIN ALFA [Suspect]
     Active Substance: DARBEPOETIN ALFA
     Indication: NEPHROGENIC ANAEMIA
     Dosage: 40 MICROGRAM
     Route: 065
     Dates: start: 20200821
  19. ZINC. [Concomitant]
     Active Substance: ZINC
     Dosage: UNK
     Route: 048
  20. DARBEPOETIN ALFA [Suspect]
     Active Substance: DARBEPOETIN ALFA
     Dosage: 30 MICROGRAM
     Route: 065
     Dates: start: 20200807
  21. PROMAC D [Concomitant]
     Active Substance: POLAPREZINC
     Dosage: UNK
     Route: 048

REACTIONS (1)
  - Sudden death [Fatal]

NARRATIVE: CASE EVENT DATE: 20201203
